FAERS Safety Report 6935422-8 (Version None)
Quarter: 2010Q3

REPORT INFORMATION
  Report Type: 
  Country: None (occurrence: None)
  Receive Date: 20100823
  Receipt Date: 20100812
  Transmission Date: 20110219
  Serious: Yes (Hospitalization)
  Sender: FDA-Public Use
  Company Number: 2009BI025974

PATIENT
  Age: 52 Year
  Sex: Female

DRUGS (1)
  1. TYSABRI [Suspect]
     Indication: MULTIPLE SCLEROSIS
     Route: 042
     Dates: start: 20081028

REACTIONS (11)
  - ABASIA [None]
  - CELLULITIS [None]
  - FEELING HOT [None]
  - KIDNEY INFECTION [None]
  - MOBILITY DECREASED [None]
  - MULTIPLE SCLEROSIS RELAPSE [None]
  - PAIN [None]
  - PAIN IN EXTREMITY [None]
  - URINARY RETENTION [None]
  - VEIN DISORDER [None]
  - VISUAL IMPAIRMENT [None]
